FAERS Safety Report 4818295-9 (Version None)
Quarter: 2005Q4

REPORT INFORMATION
  Report Type: 
  Country: None (occurrence: None)
  Receive Date: 20051102
  Receipt Date: 20050929
  Transmission Date: 20060501
  Serious: Yes (Death)
  Sender: FDA-Public Use
  Company Number: FR-BRISTOL-MYERS SQUIBB COMPANY-13127428

PATIENT
  Age: 57 Year
  Sex: Female
  Weight: 107 kg

DRUGS (8)
  1. ABILIFY [Suspect]
     Indication: PARANOIA
     Route: 048
     Dates: start: 20050523
  2. ABILIFY [Suspect]
     Indication: DELUSION
     Route: 048
     Dates: start: 20050523
  3. ABILIFY [Suspect]
     Indication: DEPRESSION
     Route: 048
     Dates: start: 20050523
  4. SEROPLEX [Concomitant]
     Indication: DEPRESSION
     Dates: start: 20050523
  5. TERCIAN [Concomitant]
     Indication: ANXIETY
     Dates: start: 20020906
  6. ATHYMIL [Concomitant]
     Indication: INSOMNIA
     Dates: start: 20040622
  7. NOCTRAN [Concomitant]
     Indication: INSOMNIA
     Dates: start: 20030102
  8. LEXOMIL [Concomitant]
     Indication: ANXIETY
     Dates: start: 19860101

REACTIONS (2)
  - COMPLETED SUICIDE [None]
  - DRUG TOXICITY [None]
